FAERS Safety Report 6998525-8 (Version None)
Quarter: 2010Q3

REPORT INFORMATION
  Report Type: 
  Country: None (occurrence: None)
  Receive Date: 20100920
  Receipt Date: 20070612
  Transmission Date: 20110219
  Serious: Yes (Other)
  Sender: FDA-Public Use
  Company Number: US-ASTRAZENECA-2006UW06618

PATIENT
  Age: 37 Year
  Sex: Female
  Weight: 114.8 kg

DRUGS (9)
  1. SEROQUEL [Suspect]
     Indication: SCHIZOPHRENIA
     Route: 048
     Dates: start: 19980101, end: 20030701
  2. SEROQUEL [Suspect]
     Route: 048
     Dates: start: 20020705
  3. SEROQUEL [Suspect]
     Route: 048
     Dates: start: 20050727
  4. ZYPREXA [Suspect]
     Dates: start: 20011001, end: 20011201
  5. ABILIFY [Suspect]
     Dates: start: 20030301
  6. ABILIFY [Suspect]
     Dates: start: 20030801
  7. ZANTAC [Concomitant]
     Dates: start: 20031122
  8. CELEXA [Concomitant]
     Dosage: 20MG -40MG
     Dates: start: 20020705
  9. LEVOXYL [Concomitant]
     Dates: start: 20021015

REACTIONS (2)
  - DIABETES MELLITUS [None]
  - DIABETES MELLITUS INADEQUATE CONTROL [None]
